FAERS Safety Report 7303986-0 (Version None)
Quarter: 2011Q1

REPORT INFORMATION
  Report Type: 
  Country: None (occurrence: None)
  Receive Date: 20110221
  Receipt Date: 20110216
  Transmission Date: 20110831
  Serious: Yes (Death, Hospitalization)
  Sender: FDA-Public Use
  Company Number: FR-ASTRAZENECA-2011SE09103

PATIENT
  Sex: Female

DRUGS (6)
  1. LASIX [Suspect]
     Route: 048
     Dates: end: 20110119
  2. ATACAND [Suspect]
     Route: 048
     Dates: end: 20110117
  3. AMIODARONE [Concomitant]
     Route: 048
  4. PREVISCAN [Suspect]
     Indication: ARRHYTHMIA
     Dosage: 20 MG, ACCORDING TO INR
     Route: 048
     Dates: end: 20110117
  5. DILTIAZEM HCL [Concomitant]
     Route: 048
  6. PREDNISONE [Concomitant]
     Indication: RHEUMATOID ARTHRITIS
     Route: 048

REACTIONS (1)
  - AGRANULOCYTOSIS [None]
